FAERS Safety Report 23797202 (Version 2)
Quarter: 2024Q4

REPORT INFORMATION
  Report Type: Report from Study
  Country: US (occurrence: US)
  Receive Date: 20240430
  Receipt Date: 20241024
  Transmission Date: 20250114
  Serious: No
  Sender: MIRUM PHARMACEUTICALS
  Company Number: US-MIRUM PHARMACEUTICALS, INC.-US-MIR-24-00161

PATIENT

DRUGS (4)
  1. LIVMARLI [Suspect]
     Active Substance: MARALIXIBAT CHLORIDE
     Indication: Alagille syndrome
     Dosage: 0.6 MILLILITER, QD
     Route: 048
     Dates: start: 202403
  2. LIVMARLI [Suspect]
     Active Substance: MARALIXIBAT CHLORIDE
     Dosage: 0.6 MILLILITER, QD
     Route: 048
     Dates: start: 202201
  3. VITAMINS [Concomitant]
     Active Substance: VITAMINS
     Indication: Product used for unknown indication
     Dosage: UNK
     Route: 065
  4. URSODIOL [Concomitant]
     Active Substance: URSODIOL
     Indication: Supplementation therapy
     Dosage: 2.5 MILLILITER, BID
     Route: 065

REACTIONS (4)
  - Bile acids abnormal [Unknown]
  - Hepatic enzyme increased [Unknown]
  - Faeces hard [Unknown]
  - Abdominal discomfort [Unknown]
